FAERS Safety Report 4662157-7 (Version None)
Quarter: 2005Q2

REPORT INFORMATION
  Report Type: 
  Country: None (occurrence: None)
  Receive Date: 20050512
  Receipt Date: 20050425
  Transmission Date: 20051028
  Serious: Yes (Hospitalization)
  Sender: FDA-Public Use
  Company Number: USA050394534

PATIENT
  Age: 24 Year
  Sex: Female

DRUGS (2)
  1. CYMBALTA [Suspect]
  2. TYLENOL (CAPLET) [Concomitant]

REACTIONS (5)
  - ABDOMINAL PAIN [None]
  - DRUG TOXICITY [None]
  - HEPATIC ENZYME INCREASED [None]
  - INTENTIONAL MISUSE [None]
  - SUICIDE ATTEMPT [None]
